FAERS Safety Report 14987307 (Version 3)
Quarter: 2018Q3

REPORT INFORMATION
  Report Type: Spontaneous
  Country: US (occurrence: US)
  Receive Date: 20180608
  Receipt Date: 20180925
  Transmission Date: 20181010
  Serious: Yes (Hospitalization, Other)
  Sender: FDA-Public Use
  Company Number: US-ASTRAZENECA-2018SE64638

PATIENT
  Sex: Female
  Weight: 67.6 kg

DRUGS (4)
  1. ADVAIR HFA [Concomitant]
     Active Substance: FLUTICASONE PROPIONATE\SALMETEROL XINAFOATE
     Indication: CHRONIC OBSTRUCTIVE PULMONARY DISEASE
     Route: 055
  2. TUDORZA PRESSAIR [Suspect]
     Active Substance: ACLIDINIUM BROMIDE
     Indication: CHRONIC OBSTRUCTIVE PULMONARY DISEASE
     Route: 055
     Dates: start: 2014
  3. TUDORZA PRESSAIR [Suspect]
     Active Substance: ACLIDINIUM BROMIDE
     Indication: EMPHYSEMA
     Route: 055
     Dates: start: 2014
  4. TUDORZA PRESSAIR [Suspect]
     Active Substance: ACLIDINIUM BROMIDE
     Indication: BRONCHITIS
     Route: 055
     Dates: start: 2014

REACTIONS (10)
  - Grip strength decreased [Unknown]
  - Malaise [Unknown]
  - Laryngitis [Not Recovered/Not Resolved]
  - Device issue [Unknown]
  - Sepsis [Unknown]
  - Pneumonia bacterial [Unknown]
  - Lung carcinoma cell type unspecified stage I [Unknown]
  - Dry mouth [Not Recovered/Not Resolved]
  - Intentional product misuse [Unknown]
  - Device malfunction [Unknown]
